FAERS Safety Report 7265455-6 (Version None)
Quarter: 2011Q1

REPORT INFORMATION
  Report Type: 
  Country: None (occurrence: None)
  Receive Date: 20110131
  Receipt Date: 20110121
  Transmission Date: 20110831
  Serious: No
  Sender: FDA-Public Use
  Company Number: FR-ASTRAZENECA-2011SE03755

PATIENT
  Age: 66 Year
  Sex: Female

DRUGS (1)
  1. IRESSA [Suspect]
     Route: 048
     Dates: start: 20101007

REACTIONS (1)
  - BLOOD CREATININE INCREASED [None]
